FAERS Safety Report 8576485-6 (Version None)
Quarter: 2012Q3

REPORT INFORMATION
  Report Type: 
  Country: None (occurrence: None)
  Receive Date: 20120807
  Receipt Date: 20120727
  Transmission Date: 20120928
  Serious: Yes (Hospitalization)
  Sender: FDA-Public Use
  Company Number: ES-ROCHE-1094375

PATIENT
  Sex: Male
  Weight: 68 kg

DRUGS (4)
  1. XELODA [Suspect]
     Indication: COLON CANCER
     Dosage: LAST DOSE PRIOR TO SAE ON 22/DEC/2011
     Route: 048
     Dates: start: 20111222
  2. ATENOLOL [Concomitant]
     Indication: HYPERTENSION
     Route: 048
  3. AVASTIN [Suspect]
     Indication: COLON CANCER
     Dosage: LAST DOSE PRIOR TO SAE ON 22/DEC/2011
     Route: 042
     Dates: start: 20111222
  4. ENALAPRIL MALEATE [Concomitant]
     Indication: HYPERTENSION
     Route: 048

REACTIONS (2)
  - ACUTE PRERENAL FAILURE [None]
  - HYPOTENSION [None]
